FAERS Safety Report 12455871 (Version 1)
Quarter: 2016Q2

REPORT INFORMATION
  Report Type: Spontaneous
  Country: VE (occurrence: VE)
  Receive Date: 20160610
  Receipt Date: 20160610
  Transmission Date: 20160815
  Serious: Yes (Other)
  Sender: FDA-Public Use
  Company Number: PHHY2016VE075703

PATIENT
  Sex: Female

DRUGS (2)
  1. DIOVAN [Suspect]
     Active Substance: VALSARTAN
     Indication: HYPERTENSION
     Dosage: 160 MG, QD
     Route: 048
     Dates: start: 2006
  2. PROSTACYCLIN [Concomitant]
     Active Substance: EPOPROSTENOL
     Indication: VENOUS OCCLUSION
     Dosage: 100 MG, Q8H
     Route: 065

REACTIONS (9)
  - Cardiac disorder [Unknown]
  - Angina pectoris [Unknown]
  - Arthropathy [Not Recovered/Not Resolved]
  - Fluid retention [Unknown]
  - Peripheral vascular disorder [Unknown]
  - Fatigue [Not Recovered/Not Resolved]
  - Gait disturbance [Not Recovered/Not Resolved]
  - Tachycardia [Unknown]
  - Type 2 diabetes mellitus [Unknown]

NARRATIVE: CASE EVENT DATE: 2006
